FAERS Safety Report 4454735-5 (Version None)
Quarter: 2004Q3

REPORT INFORMATION
  Report Type: 
  Country: None (occurrence: None)
  Receive Date: 20040920
  Receipt Date: 20040920
  Transmission Date: 20050211
  Serious: Yes (Hospitalization)
  Sender: FDA-Public Use
  Company Number: None

PATIENT
  Age: 71 Year
  Sex: Male
  Weight: 73.4827 kg

DRUGS (17)
  1. DOCETAXEL 20 MG/M2 AVENTIS [Suspect]
     Indication: NON-SMALL CELL LUNG CANCER
     Dosage: 38 MG IV
     Route: 042
     Dates: start: 20040803
  2. DOCETAXEL 20 MG/M2 AVENTIS [Suspect]
     Indication: NON-SMALL CELL LUNG CANCER
     Dosage: 38 MG IV
     Route: 042
     Dates: start: 20040810
  3. DOCETAXEL 20 MG/M2 AVENTIS [Suspect]
     Indication: NON-SMALL CELL LUNG CANCER
     Dosage: 38 MG IV
     Route: 042
     Dates: start: 20040817
  4. DOCETAXEL 20 MG/M2 AVENTIS [Suspect]
     Indication: NON-SMALL CELL LUNG CANCER
     Dosage: 38 MG IV
     Route: 042
     Dates: start: 20040824
  5. DOCETAXEL 20 MG/M2 AVENTIS [Suspect]
     Indication: NON-SMALL CELL LUNG CANCER
     Dosage: 38 MG IV
     Route: 042
     Dates: start: 20040907
  6. CARBOPLATIN [Suspect]
     Indication: NON-SMALL CELL LUNG CANCER
     Dosage: 166 MG IV
     Route: 042
     Dates: start: 20040803
  7. CARBOPLATIN [Suspect]
     Indication: NON-SMALL CELL LUNG CANCER
     Dosage: 166 MG IV
     Route: 042
     Dates: start: 20040810
  8. CARBOPLATIN [Suspect]
     Indication: NON-SMALL CELL LUNG CANCER
     Dosage: 166 MG IV
     Route: 042
     Dates: start: 20040817
  9. CARBOPLATIN [Suspect]
     Indication: NON-SMALL CELL LUNG CANCER
     Dosage: 166 MG IV
     Route: 042
     Dates: start: 20040824
  10. CARBOPLATIN [Suspect]
     Indication: NON-SMALL CELL LUNG CANCER
     Dosage: 166 MG IV
     Route: 042
     Dates: start: 20040907
  11. LISINOPRIL [Concomitant]
  12. ASPIRIN [Concomitant]
  13. ZOCOR [Concomitant]
  14. EPLERENONE [Concomitant]
  15. ATROVENT [Concomitant]
  16. FLUOXETINE [Concomitant]
  17. DIGOXIN [Concomitant]

REACTIONS (2)
  - ATRIAL FIBRILLATION [None]
  - DYSPHASIA [None]
